FAERS Safety Report 7787123-4 (Version None)
Quarter: 2011Q3

REPORT INFORMATION
  Report Type: 
  Country: None (occurrence: None)
  Receive Date: 20110929
  Receipt Date: 20110216
  Transmission Date: 20111222
  Serious: Yes (Hospitalization)
  Sender: FDA-Public Use
  Company Number: US-BAYER-201029435NA

PATIENT
  Age: 37 Year
  Sex: Female
  Weight: 111 kg

DRUGS (8)
  1. YAZ [Suspect]
     Indication: PREMENSTRUAL SYNDROME
     Dosage: UNK
     Route: 048
     Dates: start: 20080401, end: 20080619
  2. YASMIN [Suspect]
  3. MIGRAINE MEDICATION [Concomitant]
     Dosage: UNK
     Dates: start: 20080101
  4. WELLBUTRIN [Concomitant]
  5. LEXAPRO [Concomitant]
     Indication: DEPRESSION
     Dosage: DAILY DOSE 10 MG
     Route: 048
  6. YAZ [Suspect]
  7. PRILOSEC [Concomitant]
     Dosage: DAILY DOSE 20 MG
     Route: 048
  8. YASMIN [Suspect]
     Indication: PREMENSTRUAL SYNDROME
     Dosage: UNK
     Route: 048
     Dates: start: 20020101, end: 20080401

REACTIONS (2)
  - CEREBRAL INFARCTION [None]
  - TRANSIENT ISCHAEMIC ATTACK [None]
